FAERS Safety Report 11531022 (Version 1)
Quarter: 2015Q3

REPORT INFORMATION
  Report Type: Spontaneous
  Country: US (occurrence: US)
  Receive Date: 20150903
  Receipt Date: 20150903
  Transmission Date: 20151125
  Serious: Yes (Hospitalization, Other)
  Sender: FDA-Public Use
  Company Number: US-ELI_LILLY_AND_COMPANY-US201209005763

PATIENT
  Sex: Female

DRUGS (2)
  1. CYMBALTA [Suspect]
     Active Substance: DULOXETINE HYDROCHLORIDE
     Dosage: 1 D/F
  2. TRICYCLIC ANTIDEPRESSANTS [Interacting]
     Active Substance: UNSPECIFIED INGREDIENT

REACTIONS (2)
  - Serotonin syndrome [Unknown]
  - Drug interaction [Unknown]
